FAERS Safety Report 4867073-3 (Version None)
Quarter: 2005Q4

REPORT INFORMATION
  Report Type: 
  Country: None (occurrence: None)
  Receive Date: 20051221
  Receipt Date: 20051213
  Transmission Date: 20060501
  Serious: Yes (Life-Threatening, Other)
  Sender: FDA-Public Use
  Company Number: FRWYE232513DEC05

PATIENT
  Sex: Female

DRUGS (5)
  1. EFFEXOR XR [Suspect]
     Dosage: 37.5 + 75 MG DAILY ORAL
     Route: 048
     Dates: start: 20051101, end: 20051201
  2. EFFEXOR XR [Suspect]
     Dosage: 37.5 + 75 MG DAILY ORAL
     Route: 048
     Dates: start: 20051201
  3. MINOXIDIL [Concomitant]
  4. LOBAMINE 9METHIONINE) [Concomitant]
  5. CYSTEINE (CYSTEINE) [Concomitant]

REACTIONS (2)
  - ANGIONEUROTIC OEDEMA [None]
  - ERYTHEMA [None]
